FAERS Safety Report 24197601 (Version 1)
Quarter: 2024Q3

REPORT INFORMATION
  Report Type: Spontaneous
  Country: US (occurrence: US)
  Receive Date: 20240811
  Receipt Date: 20240811
  Transmission Date: 20241016
  Serious: Yes (Other)
  Sender: AMGEN
  Company Number: US-AMGEN-USASP2024156785

PATIENT
  Age: 77 Year
  Sex: Female

DRUGS (1)
  1. TEPROTUMUMAB [Suspect]
     Active Substance: TEPROTUMUMAB
     Indication: Endocrine ophthalmopathy
     Dosage: UNK
     Route: 065

REACTIONS (3)
  - Escherichia bacteraemia [Unknown]
  - Sepsis [Unknown]
  - Pharyngeal abscess [Unknown]
